FAERS Safety Report 24101005 (Version 1)
Quarter: 2024Q3

REPORT INFORMATION
  Report Type: Spontaneous
  Country: GB (occurrence: GB)
  Receive Date: 20240717
  Receipt Date: 20240717
  Transmission Date: 20241016
  Serious: Yes (Disabling)
  Sender: AMGEN
  Company Number: GB-AMGEN-GBRSP2024138894

PATIENT
  Age: 71 Year
  Sex: Male
  Weight: 83 kg

DRUGS (2)
  1. PROLIA [Suspect]
     Active Substance: DENOSUMAB
     Indication: Osteoporosis
     Dosage: UNK
     Route: 065
     Dates: start: 20231004
  2. VEDOLIZUMAB [Suspect]
     Active Substance: VEDOLIZUMAB
     Indication: Osteoporosis
     Dosage: 60 MILLIGRAM, Q6MO (6 MONTHLY)
     Route: 065

REACTIONS (1)
  - Epigastric discomfort [Not Recovered/Not Resolved]

NARRATIVE: CASE EVENT DATE: 20231104
